FAERS Safety Report 21082805 (Version 1)
Quarter: 2022Q3

REPORT INFORMATION
  Report Type: Spontaneous
  Country: US (occurrence: None)
  Receive Date: 20220714
  Receipt Date: 20220714
  Transmission Date: 20221027
  Serious: Yes (Hospitalization)
  Sender: FDA-Public Use
  Company Number: None

PATIENT
  Age: 77 Year
  Sex: Male

DRUGS (2)
  1. SERTRALINE HYDROCHLORIDE [Suspect]
     Active Substance: SERTRALINE HYDROCHLORIDE
     Dates: start: 20211119, end: 20220518
  2. BUPROPION HYDROCHLORIDE [Suspect]
     Active Substance: BUPROPION HYDROCHLORIDE
     Indication: Depression
     Dates: start: 20210205, end: 20220518

REACTIONS (7)
  - Pyrexia [None]
  - Hyponatraemia [None]
  - Dehydration [None]
  - Hypophagia [None]
  - Heat stroke [None]
  - Confusional state [None]
  - Hypohidrosis [None]

NARRATIVE: CASE EVENT DATE: 20220516
